FAERS Safety Report 7646318-0 (Version None)
Quarter: 2011Q3

REPORT INFORMATION
  Report Type: 
  Country: None (occurrence: None)
  Receive Date: 20110725
  Receipt Date: 20110712
  Transmission Date: 20111222
  Serious: Yes (Other)
  Sender: FDA-Public Use
  Company Number: 11-000600

PATIENT
  Age: 37 Year
  Sex: Female
  Weight: 44.4 kg

DRUGS (4)
  1. CEPHALEXIN [Suspect]
     Indication: SINUSITIS
     Dosage: 500 MG, BID, ORAL
     Route: 048
     Dates: start: 20110301, end: 20110301
  2. FLOVENT [Concomitant]
  3. LOESTRIN 24 FE [Suspect]
     Indication: CONTRACEPTION
     Dosage: 20/1000 UG, QD, ORAL
     Route: 048
     Dates: start: 20101018, end: 20110301
  4. LOESTRIN 24 FE [Suspect]
     Indication: CONTRACEPTION
     Dosage: 20/1000 UG, QD, ORAL
     Route: 048
     Dates: start: 20110426, end: 20110519

REACTIONS (4)
  - SINUSITIS [None]
  - MATERNAL EXPOSURE DURING PREGNANCY [None]
  - ABORTION SPONTANEOUS [None]
  - PREGNANCY ON ORAL CONTRACEPTIVE [None]
